FAERS Safety Report 10446780 (Version 2)
Quarter: 2014Q4

REPORT INFORMATION
  Report Type: Spontaneous
  Country: US (occurrence: None)
  Receive Date: 20140909
  Receipt Date: 20141110
  Transmission Date: 20150528
  Serious: Yes (Other)
  Sender: FDA-Public Use
  Company Number: IMP_07899_2014

PATIENT
  Sex: Female
  Weight: 49.9 kg

DRUGS (1)
  1. BUPROPION HYDROCHLORIDE. [Suspect]
     Active Substance: BUPROPION HYDROCHLORIDE
     Indication: PRODUCT USED FOR UNKNOWN INDICATION
     Dosage: (DF)

REACTIONS (4)
  - Quality of life decreased [None]
  - Product substitution issue [None]
  - Product quality issue [None]
  - Irritable bowel syndrome [None]
